FAERS Safety Report 5952851-X (Version None)
Quarter: 2008Q4

REPORT INFORMATION
  Report Type: 
  Country: None (occurrence: None)
  Receive Date: 20081114
  Receipt Date: 20081107
  Transmission Date: 20090506
  Serious: Yes (Death, Hospitalization, Other)
  Sender: FDA-Public Use
  Company Number: DE-BRISTOL-MYERS SQUIBB COMPANY-14282099

PATIENT
  Age: 58 Year
  Sex: Female

DRUGS (12)
  1. LYSODREN [Suspect]
     Indication: ADRENOCORTICAL CARCINOMA
     Route: 048
     Dates: start: 20080328, end: 20080404
  2. LEVOTHYROXINE SODIUM [Concomitant]
     Indication: HYPOTHYROIDISM
  3. BELOC-ZOK [Concomitant]
     Indication: HYPERTENSION
  4. ALDACTONE [Concomitant]
     Indication: HYPERCORTICOIDISM
  5. TOREM [Concomitant]
     Indication: HYPERTENSION
  6. AMLODIPINE [Concomitant]
     Indication: HYPERTENSION
  7. CLONIDINE [Concomitant]
     Indication: HYPERTENSION
  8. ESIDRIX [Concomitant]
     Indication: HYPERTENSION
  9. METOPIRONE [Concomitant]
     Indication: HYPERCORTICOIDISM
  10. KALIUM RETARD [Concomitant]
     Indication: HYPOKALAEMIA
  11. MAGNESIUM SULFATE [Concomitant]
     Indication: HYPOMAGNESAEMIA
  12. ARIXTRA [Concomitant]
     Indication: NEOPLASM MALIGNANT

REACTIONS (3)
  - HEPATIC ENZYME INCREASED [None]
  - MALIGNANT NEOPLASM PROGRESSION [None]
  - PULMONARY EMBOLISM [None]
